FAERS Safety Report 16464446 (Version 1)
Quarter: 2019Q2

REPORT INFORMATION
  Report Type: Report from Study
  Country: IT (occurrence: IT)
  Receive Date: 20190621
  Receipt Date: 20190621
  Transmission Date: 20190711
  Serious: Yes (Hospitalization)
  Sender: FDA-Public Use
  Company Number: IT-MYLANLABS-2019M1058028

PATIENT
  Age: 5 Month
  Sex: Female
  Weight: 7 kg

DRUGS (1)
  1. AZITHROMYCIN ANHYDROUS. [Suspect]
     Active Substance: AZITHROMYCIN ANHYDROUS
     Indication: BRONCHIOLITIS
     Dosage: 7.5 MILLILITER, QD
     Route: 048
     Dates: start: 20190102, end: 20190104

REACTIONS (2)
  - Vomiting [Recovering/Resolving]
  - Medication error [Recovering/Resolving]

NARRATIVE: CASE EVENT DATE: 20190104
